FAERS Safety Report 4338352-3 (Version None)
Quarter: 2004Q2

REPORT INFORMATION
  Report Type: 
  Country: None (occurrence: None)
  Receive Date: 20040409
  Receipt Date: 20040401
  Transmission Date: 20050107
  Serious: Yes (Life-Threatening, Hospitalization)
  Sender: FDA-Public Use
  Company Number: 2004PK00605

PATIENT
  Age: 44 Year
  Sex: Female
  Weight: 55 kg

DRUGS (3)
  1. SEROQUEL [Suspect]
     Dosage: UP TO 500 MG
  2. TRIMIPRAMIN-NEURAXPHARM [Suspect]
     Dosage: UP TO 2000 MG
  3. VALPROAT NEURAXPHARM [Concomitant]

REACTIONS (14)
  - BLOOD PRESSURE IMMEASURABLE [None]
  - BLOOD PRESSURE SYSTOLIC DECREASED [None]
  - BRADYPNOEA [None]
  - COMA [None]
  - CONDUCTION DISORDER [None]
  - DRUG EFFECT DECREASED [None]
  - DRUG INTERACTION [None]
  - DRUG TOXICITY [None]
  - ELECTROCARDIOGRAM QRS COMPLEX PROLONGED [None]
  - HYPOTONIA [None]
  - METABOLIC ACIDOSIS [None]
  - SHOCK [None]
  - SINUS TACHYCARDIA [None]
  - SUICIDE ATTEMPT [None]
